FAERS Safety Report 9154484 (Version 1)
Quarter: 2013Q1

REPORT INFORMATION
  Report Type: Spontaneous
  Country: US (occurrence: None)
  Receive Date: 20130306
  Receipt Date: 20130306
  Transmission Date: 20140127
  Serious: Yes (Life-Threatening, Hospitalization, Other)
  Sender: FDA-Public Use
  Company Number: None

PATIENT
  Age: 62 Year
  Sex: Male

DRUGS (1)
  1. HEPARIN [Suspect]

REACTIONS (5)
  - Platelet count decreased [None]
  - Heparin-induced thrombocytopenia [None]
  - Platelet factor 4 increased [None]
  - Serum serotonin increased [None]
  - Laboratory test abnormal [None]
